FAERS Safety Report 5702505-X (Version None)
Quarter: 2008Q2

REPORT INFORMATION
  Report Type: 
  Country: None (occurrence: None)
  Receive Date: 20080411
  Receipt Date: 20080402
  Transmission Date: 20081010
  Serious: Yes (Hospitalization)
  Sender: FDA-Public Use
  Company Number: SE-JNJFOC-20080401303

PATIENT
  Age: 76 Year
  Sex: Female

DRUGS (14)
  1. REMICADE [Suspect]
     Indication: RHEUMATOID ARTHRITIS
     Route: 042
  2. WARAN [Suspect]
     Indication: DRUG USE FOR UNKNOWN INDICATION
  3. PLAQUENIL [Concomitant]
  4. METOJECT [Concomitant]
  5. PREDNISOLONE [Concomitant]
  6. FENURIL [Concomitant]
  7. FOSAMAX [Concomitant]
  8. FLUNITRAZEPAM [Concomitant]
  9. VAGIFEM [Concomitant]
  10. ATACAND [Concomitant]
  11. IMPUGAN [Concomitant]
  12. OMEPRAZOLE [Concomitant]
  13. HIPREX [Concomitant]
  14. CALCICHEW D3 [Concomitant]

REACTIONS (1)
  - HAEMATOMA [None]
